FAERS Safety Report 21242976 (Version 1)
Quarter: 2022Q3

REPORT INFORMATION
  Report Type: Spontaneous
  Country: AU (occurrence: AU)
  Receive Date: 20220823
  Receipt Date: 20220823
  Transmission Date: 20221027
  Serious: Yes (Other)
  Sender: FDA-Public Use
  Company Number: AU-PFIZER INC-PV202200046225

PATIENT
  Age: 42 Year
  Sex: Male

DRUGS (11)
  1. ATORVASTATIN [Suspect]
     Active Substance: ATORVASTATIN
     Dosage: UNK
  2. CLOZAPINE [Suspect]
     Active Substance: CLOZAPINE
     Dosage: UNK
  3. DIAZEPAM [Suspect]
     Active Substance: DIAZEPAM
     Dosage: UNK
  4. DOCUSATE SODIUM\SENNOSIDE B [Suspect]
     Active Substance: DOCUSATE SODIUM\SENNOSIDE B
     Dosage: UNK
  5. LITHIUM [Suspect]
     Active Substance: LITHIUM
     Dosage: UNK
  6. LORAZEPAM [Suspect]
     Active Substance: LORAZEPAM
     Dosage: UNK
  7. MOVICOL [Suspect]
     Active Substance: POLYETHYLENE GLYCOL 3350\POTASSIUM CHLORIDE\SODIUM BICARBONATE\SODIUM CHLORIDE
     Dosage: UNK
  8. AMISULPRIDE [Suspect]
     Active Substance: AMISULPRIDE
     Dosage: UNK
  9. CLOMIPRAMINE HYDROCHLORIDE [Suspect]
     Active Substance: CLOMIPRAMINE HYDROCHLORIDE
     Dosage: UNK
  10. DESMOPRESSIN [Suspect]
     Active Substance: DESMOPRESSIN
     Dosage: UNK
  11. OLANZAPINE [Suspect]
     Active Substance: OLANZAPINE
     Dosage: UNK

REACTIONS (4)
  - Psychotic symptom [Unknown]
  - Seminoma [Unknown]
  - Vascular neoplasm [Unknown]
  - Disease recurrence [Unknown]
